FAERS Safety Report 5321987-9 (Version None)
Quarter: 2007Q2

REPORT INFORMATION
  Report Type: 
  Country: None (occurrence: None)
  Receive Date: 20070511
  Receipt Date: 20070430
  Transmission Date: 20071010
  Serious: Yes (Other)
  Sender: FDA-Public Use
  Company Number: PHHO2007GB04920

PATIENT
  Age: 37 Year
  Sex: Female
  Weight: 108 kg

DRUGS (2)
  1. VEA489 VS VAH631 VS VAA489 VS HCTZ/AMLOD [Suspect]
     Indication: HYPERTENSION
     Dosage: 160MG/12.5MG/5MG QD
     Route: 048
     Dates: start: 20070126, end: 20070316
  2. LEVOTHYROXINE SODIUM [Concomitant]

REACTIONS (2)
  - ABORTION INDUCED [None]
  - DRUG EXPOSURE DURING PREGNANCY [None]
